FAERS Safety Report 9299042 (Version 2)
Quarter: 2013Q3

REPORT INFORMATION
  Report Type: Spontaneous
  Country: US (occurrence: US)
  Receive Date: 20130520
  Receipt Date: 20130828
  Transmission Date: 20140515
  Serious: Yes (Other)
  Sender: FDA-Public Use
  Company Number: US-PURDUE-USA-2013-0102250

PATIENT
  Age: 30 Year
  Sex: Male
  Weight: 120.18 kg

DRUGS (8)
  1. BUTRANS [Suspect]
     Indication: PAIN
     Dosage: 5 MCG/HR, WEEKLY
     Route: 062
  2. BUTRANS [Suspect]
     Dosage: 10 MCG/HR, WEEKLY
     Route: 062
  3. BUTRANS [Suspect]
     Dosage: 20 MCG/HR, WEEKLY
     Route: 062
     Dates: start: 201209
  4. KEPPRA [Suspect]
     Indication: CONVULSION
     Dosage: 1000 MG, BID
  5. ZOLOFT [Concomitant]
     Indication: PRODUCT USED FOR UNKNOWN INDICATION
     Dosage: 100 MG, AM
  6. PERCOCET                           /00867901/ [Concomitant]
     Indication: PRODUCT USED FOR UNKNOWN INDICATION
     Dosage: 10/325 MG , PRN
  7. VALIUM                             /00017001/ [Concomitant]
     Indication: PRODUCT USED FOR UNKNOWN INDICATION
     Dosage: 5 MG, UNK
  8. TIZANIDINE [Concomitant]
     Indication: PRODUCT USED FOR UNKNOWN INDICATION
     Dosage: 4 MG, PM

REACTIONS (4)
  - Suicidal ideation [Unknown]
  - Application site pruritus [Unknown]
  - Inadequate analgesia [Unknown]
  - Drug interaction [Unknown]
